FAERS Safety Report 23461050 (Version 1)
Quarter: 2024Q1

REPORT INFORMATION
  Report Type: Spontaneous
  Country: US (occurrence: US)
  Receive Date: 20240131
  Receipt Date: 20240131
  Transmission Date: 20240410
  Serious: Yes (Other)
  Sender: FDA-Public Use
  Company Number: US-PFIZER INC-PV202400012914

PATIENT
  Age: 51 Year
  Sex: Female

DRUGS (4)
  1. VERAPAMIL HCL [Interacting]
     Active Substance: VERAPAMIL HYDROCHLORIDE
     Dosage: UNK
     Dates: end: 202401
  2. LUPKYNIS [Interacting]
     Active Substance: VOCLOSPORIN
     Indication: Lupus nephritis
     Dosage: 23.7 MILLIGRAM, BID (TWICE A DAY), ORAL USE
     Route: 048
  3. VALSARTAN [Concomitant]
     Active Substance: VALSARTAN
     Dosage: TWICE DAILY
  4. LABETALOL [Concomitant]
     Active Substance: LABETALOL\LABETALOL HYDROCHLORIDE
     Dosage: 200 MG THREE TIMES DAILY

REACTIONS (4)
  - Blood pressure increased [Unknown]
  - Eye haemorrhage [Unknown]
  - Headache [Unknown]
  - Drug interaction [Unknown]

NARRATIVE: CASE EVENT DATE: 20240101
